FAERS Safety Report 16294215 (Version 1)
Quarter: 2019Q2

REPORT INFORMATION
  Report Type: Spontaneous
  Country: US (occurrence: US)
  Receive Date: 20190509
  Receipt Date: 20190509
  Transmission Date: 20190711
  Serious: No
  Sender: FDA-Public Use
  Company Number: US-ROCHE-2156855

PATIENT
  Age: 47 Year
  Sex: Male

DRUGS (2)
  1. PIRFENIDONE. [Suspect]
     Active Substance: PIRFENIDONE
     Indication: COMPLICATIONS OF TRANSPLANTED LUNG
  2. PIRFENIDONE. [Suspect]
     Active Substance: PIRFENIDONE
     Indication: IDIOPATHIC PULMONARY FIBROSIS
     Route: 065

REACTIONS (1)
  - Nausea [Unknown]
